FAERS Safety Report 7384073-2 (Version None)
Quarter: 2011Q1

REPORT INFORMATION
  Report Type: 
  Country: None (occurrence: None)
  Receive Date: 20110330
  Receipt Date: 20110324
  Transmission Date: 20110831
  Serious: Yes (Hospitalization)
  Sender: FDA-Public Use
  Company Number: A0773141A

PATIENT
  Age: 62 Year
  Sex: Male
  Weight: 113.6 kg

DRUGS (4)
  1. JANUVIA [Concomitant]
  2. METFORMIN [Concomitant]
  3. AVANDIA [Suspect]
     Indication: DIABETES MELLITUS
     Dosage: 8MG TWICE PER DAY
     Route: 048
     Dates: start: 20050101, end: 20070531
  4. GLUCOTROL [Concomitant]

REACTIONS (3)
  - ACUTE CORONARY SYNDROME [None]
  - CARDIAC DISORDER [None]
  - MYOCARDIAL INFARCTION [None]
